FAERS Safety Report 7882204 (Version 2)
Quarter: 2012Q4

REPORT INFORMATION
  Report Type: 
  Country: UA (occurrence: UA)
  Receive Date: 20110401
  Receipt Date: 20121214
  Transmission Date: 20130627
  Serious: Yes (Death, Other)
  Sender: FDA-Public Use
  Company Number: PHHY2011UA25862

PATIENT
  Age: 61 Year
  Sex: Female

DRUGS (9)
  1. RETARPEN [Suspect]
     Indication: RHEUMATIC HEART DISEASE
     Dosage: 2400000 IU, UNK
     Dates: start: 200312, end: 201103
  2. CARDITAL [Concomitant]
  3. FUROSEMIDE [Concomitant]
  4. ASPECARD [Concomitant]
  5. SYDNOPHARM [Concomitant]
  6. CORDARONE [Concomitant]
  7. DIGOXIN [Concomitant]
  8. BISOPROLOL [Concomitant]
  9. TORSID [Concomitant]

REACTIONS (9)
  - Anaphylactic shock [Fatal]
  - Loss of consciousness [Fatal]
  - Respiratory arrest [Fatal]
  - Pulse abnormal [Fatal]
  - Atrial fibrillation [Unknown]
  - Femoral hernia [Unknown]
  - Bronchitis [Unknown]
  - Hyperaemia [Unknown]
  - Ulcer [Unknown]
